FAERS Safety Report 5694414-X (Version None)
Quarter: 2008Q2

REPORT INFORMATION
  Report Type: 
  Country: None (occurrence: None)
  Receive Date: 20080403
  Receipt Date: 20080403
  Transmission Date: 20081010
  Serious: Yes (Hospitalization)
  Sender: FDA-Public Use
  Company Number: None

PATIENT
  Age: 62 Year
  Sex: Female
  Weight: 71 kg

DRUGS (2)
  1. ABILIFY [Suspect]
     Dosage: 5 MG BID PO
     Route: 048
  2. DULOXETINE   60 MG [Suspect]
     Dosage: 60 MG DAILY PO
     Route: 048

REACTIONS (3)
  - BLOOD SODIUM DECREASED [None]
  - CONVULSION [None]
  - FALL [None]
